FAERS Safety Report 23911209 (Version 1)
Quarter: 2024Q2

REPORT INFORMATION
  Report Type: Spontaneous
  Country: CN (occurrence: CN)
  Receive Date: 20240528
  Receipt Date: 20240528
  Transmission Date: 20240716
  Serious: Yes (Life-Threatening, Other)
  Sender: FDA-Public Use
  Company Number: CN-BAYER-2024A077275

PATIENT
  Age: 57 Year
  Sex: Female

DRUGS (1)
  1. ULTRAVIST [Suspect]
     Active Substance: IOPROMIDE
     Indication: Computerised tomogram
     Dosage: 100 ML, ONCE
     Route: 041
     Dates: start: 20240408, end: 20240408

REACTIONS (12)
  - Anaphylactic shock [Recovering/Resolving]
  - Hypoaesthesia [None]
  - Blood pressure fluctuation [Recovered/Resolved]
  - Unresponsive to stimuli [None]
  - Hypoaesthesia oral [None]
  - Pallor [None]
  - Hyperhidrosis [None]
  - Dizziness [None]
  - Respiratory rate increased [None]
  - Urinary incontinence [None]
  - Pupillary reflex impaired [None]
  - Rash [Recovering/Resolving]

NARRATIVE: CASE EVENT DATE: 20240408
